FAERS Safety Report 8066346-3 (Version None)
Quarter: 2012Q1

REPORT INFORMATION
  Report Type: 
  Country: None (occurrence: None)
  Receive Date: 20120124
  Receipt Date: 20120118
  Transmission Date: 20120608
  Serious: Yes (Life-Threatening, Hospitalization)
  Sender: FDA-Public Use
  Company Number: GB-ROCHE-1032098

PATIENT
  Age: 70 Year
  Sex: Female

DRUGS (8)
  1. LUCENTIS [Suspect]
     Indication: PRODUCT USED FOR UNKNOWN INDICATION
     Route: 050
     Dates: start: 20070101, end: 20110101
  2. CITALOPRAM HYDROBROMIDE [Concomitant]
  3. PREDNISOLONE [Concomitant]
  4. SIMVASTATIN [Concomitant]
  5. SOLIFENACIN SUCCINATE [Concomitant]
  6. AMITRIPTYLINE HCL [Concomitant]
  7. OMEPRAZOLE [Concomitant]
  8. ACETYLCYSTEINE [Concomitant]

REACTIONS (2)
  - THALAMUS HAEMORRHAGE [None]
  - CEREBRAL HAEMORRHAGE [None]
